FAERS Safety Report 11370883 (Version 1)
Quarter: 2015Q3

REPORT INFORMATION
  Report Type: Spontaneous
  Country: US (occurrence: US)
  Receive Date: 20150812
  Receipt Date: 20150812
  Transmission Date: 20151125
  Serious: No
  Sender: FDA-Public Use
  Company Number: US-GE HEALTHCARE MEDICAL DIAGNOSTICS-OPTN-PR-1504S-0007

PATIENT
  Age: 35 Year
  Sex: Female

DRUGS (2)
  1. OPTISON [Suspect]
     Active Substance: ALBUMIN (HUMAN)
     Indication: DIAGNOSTIC PROCEDURE
  2. OPTISON [Suspect]
     Active Substance: ALBUMIN (HUMAN)
     Indication: CHEST PAIN
     Route: 042
     Dates: start: 20150409, end: 20150409

REACTIONS (1)
  - Back pain [Recovering/Resolving]

NARRATIVE: CASE EVENT DATE: 20150409
